FAERS Safety Report 23123852 (Version 1)
Quarter: 2023Q4

REPORT INFORMATION
  Report Type: Spontaneous
  Country: IT (occurrence: IT)
  Receive Date: 20231030
  Receipt Date: 20231030
  Transmission Date: 20240110
  Serious: Yes (Other)
  Sender: FDA-Public Use
  Company Number: IT-MYLANLABS-2023M1112512

PATIENT
  Age: 80 Year
  Sex: Female

DRUGS (13)
  1. PREDNISONE [Suspect]
     Active Substance: PREDNISONE
     Indication: Immune thrombocytopenia
     Dosage: UNK
     Route: 065
     Dates: end: 202103
  2. ELTROMBOPAG [Suspect]
     Active Substance: ELTROMBOPAG
     Indication: Immune thrombocytopenia
     Dosage: 75 MILLIGRAM, QD
     Route: 065
     Dates: start: 201612
  3. ELTROMBOPAG [Suspect]
     Active Substance: ELTROMBOPAG
     Dosage: UNK, RESTARTED
     Route: 065
     Dates: start: 201701
  4. DEXAMETHASONE [Suspect]
     Active Substance: DEXAMETHASONE
     Indication: Immune thrombocytopenia
     Dosage: 40 MILLIGRAM, QD
     Route: 065
  5. DEXAMETHASONE [Suspect]
     Active Substance: DEXAMETHASONE
     Dosage: 10 MILLIGRAM, QD
     Route: 065
  6. DEXAMETHASONE [Suspect]
     Active Substance: DEXAMETHASONE
     Dosage: UNK
     Route: 065
     Dates: end: 202103
  7. PRIVIGEN [Suspect]
     Active Substance: HUMAN IMMUNOGLOBULIN G
     Indication: Immune thrombocytopenia
     Dosage: UNK, 1 G/KG/DAY.
     Route: 042
  8. PRIVIGEN [Suspect]
     Active Substance: HUMAN IMMUNOGLOBULIN G
     Dosage: UNK UNK, CYCLE, BIMONTHLY
     Route: 042
     Dates: end: 202103
  9. RITUXIMAB [Suspect]
     Active Substance: RITUXIMAB
     Indication: Immune thrombocytopenia
     Dosage: UNK UNK, QW, WEEKLY, GIVEN FOR 4 DOSES.
     Route: 065
     Dates: end: 202103
  10. DANAZOL [Suspect]
     Active Substance: DANAZOL
     Indication: Immune thrombocytopenia
     Dosage: UNK
     Route: 065
     Dates: end: 202103
  11. MEZAGITAMAB [Suspect]
     Active Substance: MEZAGITAMAB
     Indication: Immune thrombocytopenia
     Dosage: UNK UNK, QW, (WEEKLY), INTRAVENOUS INFUSION
     Route: 042
     Dates: start: 20210518
  12. ROMIPLOSTIM [Concomitant]
     Active Substance: ROMIPLOSTIM
     Indication: Immune thrombocytopenia
     Dosage: 1 G/KG/DAY.
     Route: 065
     Dates: start: 201610
  13. METHYLPREDNISOLONE [Concomitant]
     Active Substance: METHYLPREDNISOLONE
     Indication: Immune thrombocytopenia
     Dosage: 1 MILLIGRAM/KILOGRAM, QD
     Route: 065

REACTIONS (1)
  - Drug ineffective [Unknown]
